FAERS Safety Report 6844471-X (Version None)
Quarter: 2010Q3

REPORT INFORMATION
  Report Type: 
  Country: None (occurrence: None)
  Receive Date: 20100713
  Receipt Date: 20100210
  Transmission Date: 20110219
  Serious: Yes (Hospitalization)
  Sender: FDA-Public Use
  Company Number: 1-18136537

PATIENT
  Age: 70 Year
  Sex: Female
  Weight: 105.2345 kg

DRUGS (14)
  1. QUALAQUIN [Suspect]
     Indication: MUSCLE SPASMS
     Dosage: ORAL
     Route: 048
     Dates: start: 20070511, end: 20080430
  2. QUININE SULFATE [Suspect]
     Indication: MUSCLE SPASMS
     Dosage: ORAL
     Route: 048
     Dates: start: 20001103
  3. QUININE SULFATE [Suspect]
     Indication: MUSCLE SPASMS
     Dosage: ORAL
     Route: 048
     Dates: start: 20041022
  4. QUININE SULFATE [Suspect]
     Indication: MUSCLE SPASMS
     Dosage: ORAL
     Route: 048
     Dates: start: 20080429, end: 20080430
  5. CELEBREX [Concomitant]
  6. ASPIRIN [Concomitant]
  7. GLUCOVANCE [Concomitant]
  8. ZESTORETIC [Concomitant]
  9. NEURONTIN [Concomitant]
  10. ALLOPURINOL [Concomitant]
  11. DARVOCET [Concomitant]
  12. PAXIL [Concomitant]
  13. LASIX [Concomitant]
  14. REQUIP [Concomitant]

REACTIONS (11)
  - ASTHENIA [None]
  - BLOOD DISORDER [None]
  - BLOOD UREA INCREASED [None]
  - FATIGUE [None]
  - HYPOTENSION [None]
  - NAUSEA [None]
  - OROPHARYNGEAL BLISTERING [None]
  - PAIN [None]
  - PAIN IN EXTREMITY [None]
  - UPPER GASTROINTESTINAL HAEMORRHAGE [None]
  - VOMITING [None]
